FAERS Safety Report 23897749 (Version 1)
Quarter: 2024Q2

REPORT INFORMATION
  Report Type: Spontaneous
  Country: CN (occurrence: None)
  Receive Date: 20240524
  Receipt Date: 20240524
  Transmission Date: 20240715
  Serious: Yes (Other)
  Sender: FDA-Public Use
  Company Number: 2024A118683

PATIENT
  Age: 51 Year
  Sex: Female

DRUGS (11)
  1. OLAPARIB [Suspect]
     Active Substance: OLAPARIB
     Indication: Lung adenocarcinoma
     Route: 048
     Dates: start: 20220825, end: 202302
  2. PEMETREXED/CARBOPLATIN [Concomitant]
     Indication: Lung adenocarcinoma
     Dosage: 6 COURSES
     Dates: start: 20190822
  3. BEVACIZUMAB [Concomitant]
     Active Substance: BEVACIZUMAB
     Indication: Lung adenocarcinoma
     Dosage: 6 COURSES
     Dates: start: 20190822
  4. BEVACIZUMAB/PEMETREXED [Concomitant]
     Indication: Lung adenocarcinoma
     Dosage: 2 COURSES
     Dates: start: 20200109
  5. BEVACIZUMAB/PEMETREXED [Concomitant]
     Indication: Lung adenocarcinoma
     Dosage: 6 COURSES
     Dates: start: 20211212
  6. BEVACIZUMAB/PEMETREXED/CARBOPLATIN [Concomitant]
     Indication: Lung adenocarcinoma
     Dosage: 6 COURSES
     Dates: start: 20200731
  7. SINTILIMAB [Concomitant]
     Active Substance: SINTILIMAB
     Indication: Lung adenocarcinoma
     Dosage: 6 COURSES
     Dates: start: 20200731
  8. SINTILIMAB [Concomitant]
     Active Substance: SINTILIMAB
     Indication: Lung adenocarcinoma
     Dosage: 6 COURSES
     Dates: start: 20211212
  9. CISPLATIN\PACLITAXEL [Concomitant]
     Active Substance: CISPLATIN\PACLITAXEL
     Indication: Lung adenocarcinoma
     Dosage: 6 COURSES
     Dates: start: 20210508
  10. BEVACIZUMAB/GEMCITABINE [Concomitant]
     Indication: Lung adenocarcinoma
     Dosage: 6 COURSES
     Dates: start: 20211214
  11. CATEQUENTINIB [Concomitant]
     Active Substance: CATEQUENTINIB
     Indication: Lung adenocarcinoma
     Dosage: 12 MG ONCE DAILY (2 WEEKS ON/1 WEEK OFF)
     Dates: start: 20220516, end: 20220617

REACTIONS (4)
  - Drug resistance [Unknown]
  - Malignant neoplasm progression [Unknown]
  - Metastases to lymph nodes [Unknown]
  - BRAF V600E mutation positive [Unknown]
